FAERS Safety Report 10504850 (Version 1)
Quarter: 2014Q3

REPORT INFORMATION
  Report Type: Spontaneous
  Country: US (occurrence: None)
  Receive Date: 20140926
  Receipt Date: 20140926
  Transmission Date: 20150326
  Serious: No
  Sender: FDA-Public Use
  Company Number: 1000069212

PATIENT
  Age: 90 Year
  Sex: Female

DRUGS (14)
  1. LINZESS [Suspect]
     Active Substance: LINACLOTIDE
     Indication: CONSTIPATION
     Dates: start: 20140717
  2. TRICOR(FENOFIBRATE) [Concomitant]
  3. SOMA(CARISOPRODOL [Concomitant]
  4. COENZYME Q10 (UBIDECARENONE) [Concomitant]
  5. CRESTOR [Concomitant]
     Active Substance: ROSUVASTATIN CALCIUM
  6. PROBIOTICS [Concomitant]
     Active Substance: PROBIOTICS NOS
  7. DILTIAZEM(DILTIAZEM HYDROCHLORIDE) [Concomitant]
  8. LEVOTHYROXINE(LEVOTHYROXINE SODIUM) [Concomitant]
  9. CELEBREX(CELECOXIB) [Concomitant]
  10. MVI(VITAMINS NOS) [Concomitant]
  11. CROBENETINE(CROBENETINE) [Concomitant]
  12. ESTROPIPATE. [Concomitant]
     Active Substance: ESTROPIPATE
  13. SINGULAIR(MONTELUKAST SODIUM) [Concomitant]
  14. OMEGA-3 FATTY ACID [Concomitant]
     Active Substance: OMEGA-3 FATTY ACIDS

REACTIONS (1)
  - Diarrhoea [None]

NARRATIVE: CASE EVENT DATE: 20140718
